FAERS Safety Report 6157054-4 (Version None)
Quarter: 2009Q2

REPORT INFORMATION
  Report Type: 
  Country: None (occurrence: None)
  Receive Date: 20090413
  Receipt Date: 20090402
  Transmission Date: 20091009
  Serious: Yes (Hospitalization)
  Sender: FDA-Public Use
  Company Number: GXKR2009GB04263

PATIENT
  Age: 35 Year
  Sex: Male

DRUGS (2)
  1. DOXYCYCLINE [Suspect]
     Dosage: 100 MG, QD, ORAL
     Route: 048
     Dates: start: 20090203
  2. VENLAFAXINE HCL [Concomitant]

REACTIONS (4)
  - DYSPNOEA [None]
  - PRURITUS [None]
  - RASH ERYTHEMATOUS [None]
  - WHEEZING [None]
